FAERS Safety Report 15918316 (Version 2)
Quarter: 2019Q3

REPORT INFORMATION
  Report Type: Spontaneous
  Country: ES (occurrence: ES)
  Receive Date: 20190205
  Receipt Date: 20190711
  Transmission Date: 20191004
  Serious: Yes (Other)
  Sender: FDA-Public Use
  Company Number: ES-MYLANLABS-2019M1007524

PATIENT
  Age: 4 Decade
  Sex: Female

DRUGS (9)
  1. IMMUNOGLOBULINS NOS [Suspect]
     Active Substance: IMMUNE GLOBULIN NOS
     Indication: DYSTONIA
     Dosage: MONTHLY PULSES PULSES OF INTRAVENOUS IMMUNE GLOBULIN
     Route: 042
  2. PREGABALIN. [Suspect]
     Active Substance: PREGABALIN
     Indication: DYSTONIA
     Route: 065
  3. TRIHEXYPHENIDYL [Suspect]
     Active Substance: TRIHEXYPHENIDYL
     Indication: DYSTONIA
     Dosage: 15 MILLIGRAM, QD
     Route: 065
  4. BOTULINUM TOXIN [Suspect]
     Active Substance: BOTULINUM TOXIN NOS
     Indication: DYSTONIA
     Dosage: IN THE TRICEPS MUSCLES AND TIBIALIS POSTERIOR
     Route: 030
  5. LEVODOPA [Suspect]
     Active Substance: LEVODOPA
     Indication: DYSTONIA
     Dosage: 300 MILLIGRAM, QD
     Route: 065
  6. CARBAMAZEPINE. [Concomitant]
     Active Substance: CARBAMAZEPINE
     Indication: SEIZURE
     Dosage: 1200 MILLIGRAM, QD
     Route: 065
  7. BACLOFEN. [Suspect]
     Active Substance: BACLOFEN
     Indication: DYSTONIA
     Dosage: UNK
     Route: 048
  8. METHYLPREDNISOLONE. [Suspect]
     Active Substance: METHYLPREDNISOLONE
     Indication: DYSTONIA
     Dosage: ONE COURSE OF HIGH DOSE METHYLPREDNISOLONE
     Route: 042
  9. CLOBAZAM. [Concomitant]
     Active Substance: CLOBAZAM
     Indication: SEIZURE
     Dosage: 30 MILLIGRAM, QD
     Route: 065

REACTIONS (1)
  - Drug ineffective [Unknown]
